FAERS Safety Report 10410681 (Version 1)
Quarter: 2014Q2

REPORT INFORMATION
  Report Type: Spontaneous
  Country: US (occurrence: None)
  Receive Date: 20140530
  Receipt Date: 20140530
  Transmission Date: 20141212
  Serious: No
  Sender: FDA-Public Use
  Company Number: 226898LEO

PATIENT
  Age: 59 Year
  Sex: Female

DRUGS (1)
  1. PICATO [Suspect]
     Indication: ACTINIC KERATOSIS
     Dates: start: 20140303, end: 20140304

REACTIONS (5)
  - Ocular hyperaemia [None]
  - Eye swelling [None]
  - Eye pain [None]
  - Accidental exposure to product [None]
  - Incorrect drug administration duration [None]
